FAERS Safety Report 17763602 (Version 1)
Quarter: 2020Q2

REPORT INFORMATION
  Report Type: Spontaneous
  Country: DK (occurrence: DK)
  Receive Date: 20200509
  Receipt Date: 20200509
  Transmission Date: 20200714
  Serious: Yes (Hospitalization)
  Sender: FDA-Public Use
  Company Number: DK-TEVA-2020-DK-1232543

PATIENT
  Age: 39 Year
  Sex: Male

DRUGS (2)
  1. ANTABUS [Suspect]
     Active Substance: DISULFIRAM
     Indication: ALCOHOLISM
     Dosage: DOSAGE: 1 1/2 TABLET DAILY FOR 2 DAYS THEREAFTER TWICE A WEEK
     Route: 048
     Dates: start: 20181220, end: 20190109
  2. CAMPRAL [Concomitant]
     Active Substance: ACAMPROSATE CALCIUM
     Indication: ALCOHOLISM
     Dosage: 999 MG
     Route: 048
     Dates: start: 20190103, end: 20190109

REACTIONS (6)
  - Rash [Unknown]
  - Pruritus [Unknown]
  - Hepatitis toxic [Recovering/Resolving]
  - Ocular icterus [Unknown]
  - Drug hypersensitivity [Recovering/Resolving]
  - Liver function test increased [Recovered/Resolved]

NARRATIVE: CASE EVENT DATE: 201901
